FAERS Safety Report 5010633-X (Version None)
Quarter: 2006Q2

REPORT INFORMATION
  Report Type: 
  Country: None (occurrence: None)
  Receive Date: 20060525
  Receipt Date: 20060516
  Transmission Date: 20061013
  Serious: Yes (Other)
  Sender: FDA-Public Use
  Company Number: BR-JNJFOC-20060307869

PATIENT
  Age: 56 Year
  Sex: Female
  Weight: 70 kg

DRUGS (6)
  1. CAELYX [Suspect]
     Route: 042
  2. CAELYX [Suspect]
     Dosage: CYCLES 5-6
     Route: 042
  3. CAELYX [Suspect]
     Dosage: CYCLE 4
     Route: 042
  4. CAELYX [Suspect]
     Route: 042
  5. CAELYX [Suspect]
     Route: 042
  6. CAELYX [Suspect]
     Indication: OVARIAN CANCER
     Dosage: CYCLES 1-3
     Route: 042

REACTIONS (1)
  - BRONCHIOLITIS [None]
